FAERS Safety Report 8125203-4 (Version None)
Quarter: 2012Q1

REPORT INFORMATION
  Report Type: 
  Country: None (occurrence: None)
  Receive Date: 20120209
  Receipt Date: 20120208
  Transmission Date: 20120608
  Serious: Yes (Death)
  Sender: FDA-Public Use
  Company Number: JP-BAYER-2012-003049

PATIENT
  Age: 76 Year
  Sex: Male
  Weight: 70 kg

DRUGS (7)
  1. RABEPRAZOLE SODIUM [Concomitant]
     Indication: PROPHYLAXIS
     Dosage: DAILY DOSE 10 MG
     Route: 048
     Dates: start: 20111201
  2. NORVASC [Concomitant]
     Indication: HYPERTENSION
     Dosage: DAILY DOSE 5 MG
     Route: 048
  3. NOVAMIN [Concomitant]
     Indication: PROPHYLAXIS
     Dosage: DAILY DOSE 15 MG
     Route: 048
     Dates: start: 20111205
  4. NEXAVAR [Suspect]
     Indication: HEPATIC NEOPLASM MALIGNANT
     Dosage: 200 MG, BID
     Route: 048
     Dates: start: 20111205, end: 20111213
  5. MAGNESIUM SULFATE [Concomitant]
     Indication: PROPHYLAXIS
     Dosage: DAILY DOSE 1320 MG
     Route: 048
     Dates: start: 20111205
  6. LOXONIN [Concomitant]
     Indication: PAIN
     Dosage: DAILY DOSE 180 MG
     Route: 048
     Dates: start: 20111201
  7. OXYCONTIN [Concomitant]
     Indication: PAIN
     Dosage: DAILY DOSE 10 MG
     Route: 048
     Dates: start: 20111205

REACTIONS (1)
  - INTERSTITIAL LUNG DISEASE [None]
